FAERS Safety Report 7765989-1 (Version None)
Quarter: 2011Q3

REPORT INFORMATION
  Report Type: 
  Country: None (occurrence: None)
  Receive Date: 20110921
  Receipt Date: 20110516
  Transmission Date: 20111222
  Serious: No
  Sender: FDA-Public Use
  Company Number: US-BAYER-2011-043564

PATIENT
  Sex: Female
  Weight: 68 kg

DRUGS (7)
  1. FERGON [Concomitant]
     Dosage: UNK
     Route: 048
  2. KLOR-CON [Concomitant]
     Dosage: UNK
     Route: 048
  3. ACETYLSALICYLIC ACID SRT [Concomitant]
     Dosage: UNK
  4. TORSEMIDE [Concomitant]
     Dosage: UNK
     Route: 048
  5. OXYBUTYNIN [Concomitant]
  6. ALEVE (CAPLET) [Suspect]
     Dosage: 2 TAB EACH TIME, BID
     Route: 048
  7. VITAMIN D [Concomitant]
     Dosage: UNK
     Route: 048

REACTIONS (1)
  - OEDEMA PERIPHERAL [None]
